FAERS Safety Report 9892203 (Version 2)
Quarter: 2014Q3

REPORT INFORMATION
  Report Type: Spontaneous
  Country: US (occurrence: US)
  Receive Date: 20140212
  Receipt Date: 20140727
  Transmission Date: 20150326
  Serious: Yes (Hospitalization, Other)
  Sender: FDA-Public Use
  Company Number: US-009507513-1402USA005045

PATIENT
  Sex: Female

DRUGS (1)
  1. NUVARING [Suspect]
     Active Substance: ETHINYL ESTRADIOL\ETONOGESTREL
     Indication: PRODUCT USED FOR UNKNOWN INDICATION
     Dosage: INSERT ON DAY 2 AND REMOVE DAY 25
     Route: 067
     Dates: start: 20120605

REACTIONS (4)
  - Vaginitis bacterial [Unknown]
  - Anaemia [Unknown]
  - Pulmonary embolism [Unknown]
  - Endometrial hypertrophy [Unknown]

NARRATIVE: CASE EVENT DATE: 201206
